FAERS Safety Report 6594256 (Version 3)
Quarter: 2013Q2

REPORT INFORMATION
  Report Type: Spontaneous
  Country: NZ (occurrence: NZ)
  Receive Date: 20080326
  Receipt Date: 20130402
  Transmission Date: 20140414
  Serious: Yes (Life-Threatening, Other)
  Sender: FDA-Public Use
  Company Number: NZ-PFIZER INC-2008026455

PATIENT
  Age: 55 Year
  Sex: Female
  Weight: 44 kg

DRUGS (6)
  1. CHAMPIX [Suspect]
     Indication: SMOKING CESSATION THERAPY
     Dosage: 0.5 MG, SINGLE
     Route: 048
     Dates: start: 20080310, end: 20080311
  2. EFORMOTEROL FUMARATE [Concomitant]
     Indication: ASTHMA
     Dosage: 12 UG, 2X/DAY
     Route: 055
  3. BRICANYL TURBUHALER [Concomitant]
     Indication: ASTHMA
     Dosage: 250 - 500 MICROGRAM
     Route: 055
  4. PULMICORT TURBUHALER [Concomitant]
     Indication: ASTHMA
     Dosage: 400 UG, 2X/DAY
     Route: 055
  5. CIPFLOX [Concomitant]
     Indication: LOWER RESPIRATORY TRACT INFECTION
     Dosage: 500 MG, 2X/DAY
     Route: 048
     Dates: start: 20080306, end: 20080316
  6. PREDNISONE [Concomitant]
     Dosage: 40 MG, 1X/DAY
     Route: 048
     Dates: start: 20080306, end: 20080316

REACTIONS (8)
  - Hypersensitivity [Recovered/Resolved]
  - Asthma [Recovered/Resolved]
  - Chest discomfort [Unknown]
  - Foaming at mouth [Unknown]
  - Suffocation feeling [Unknown]
  - Insomnia [Recovered/Resolved]
  - Dizziness [Recovered/Resolved]
  - Dry mouth [Unknown]
